FAERS Safety Report 8878954 (Version 1)
Quarter: 2012Q4

REPORT INFORMATION
  Report Type: 
  Country: US (occurrence: US)
  Receive Date: 20121026
  Receipt Date: 20121026
  Transmission Date: 20130627
  Serious: Yes (Other)
  Sender: FDA-Public Use
  Company Number: US-ROCHE-1139086

PATIENT
  Sex: Male

DRUGS (2)
  1. PROTROPIN [Suspect]
     Indication: GROWTH HORMONE DEFICIENCY
     Route: 058
  2. PROTROPIN [Suspect]
     Route: 058

REACTIONS (1)
  - Leukaemia [Unknown]
